FAERS Safety Report 8255168-6 (Version None)
Quarter: 2012Q1

REPORT INFORMATION
  Report Type: 
  Country: None (occurrence: None)
  Receive Date: 20120322
  Receipt Date: 20120208
  Transmission Date: 20120608
  Serious: Yes (Death)
  Sender: FDA-Public Use
  Company Number: UTC-015391

PATIENT
  Age: 63 Year
  Sex: Male
  Weight: 93.63 kg

DRUGS (2)
  1. TYVASO [Suspect]
     Indication: PULMONARY ARTERIAL HYPERTENSION
     Dosage: 72-90 MCG (4 IN 1 D), INHALATION
     Route: 055
     Dates: start: 20111104
  2. ADCIRCA [Concomitant]

REACTIONS (1)
  - SEPSIS [None]
